FAERS Safety Report 9155370 (Version 1)
Quarter: 2013Q1

REPORT INFORMATION
  Report Type: Spontaneous
  Country: RO (occurrence: RO)
  Receive Date: 20130311
  Receipt Date: 20130311
  Transmission Date: 20140127
  Serious: Yes (Life-Threatening, Other)
  Sender: FDA-Public Use
  Company Number: RO-ASTRAZENECA-2013SE15624

PATIENT
  Age: 64 Year
  Sex: Male

DRUGS (6)
  1. VIMOVO [Suspect]
     Indication: BACK PAIN
     Route: 048
     Dates: start: 20130305, end: 20130305
  2. NOLIPREL [Concomitant]
     Dosage: 5/1,25 MG EVERY DAY
     Route: 048
  3. NEBILET [Concomitant]
     Route: 048
  4. ASPENTER [Concomitant]
     Route: 048
  5. ATORIS [Concomitant]
     Route: 048
  6. CARDIOVASCULAR MEDICATION [Concomitant]

REACTIONS (4)
  - Laryngospasm [Recovered/Resolved]
  - Eye pruritus [Recovered/Resolved]
  - Angioedema [Recovered/Resolved]
  - Hypotension [Unknown]
